FAERS Safety Report 17428587 (Version 1)
Quarter: 2020Q1

REPORT INFORMATION
  Report Type: Spontaneous
  Country: US (occurrence: US)
  Receive Date: 20200131
  Receipt Date: 20200131
  Transmission Date: 20200409
  Serious: Yes (Death)
  Sender: FDA-Public Use
  Company Number: None

PATIENT
  Age: 39 Year
  Sex: Female
  Weight: 128 kg

DRUGS (1)
  1. OMNIPAQUE [Suspect]
     Active Substance: IOHEXOL

REACTIONS (4)
  - Dyspnoea [None]
  - Documented hypersensitivity to administered product [None]
  - Cardio-respiratory arrest [None]
  - Pulse absent [None]

NARRATIVE: CASE EVENT DATE: 202001
